FAERS Safety Report 23233609 (Version 1)
Quarter: 2023Q4

REPORT INFORMATION
  Report Type: Report from Study
  Country: CA (occurrence: CA)
  Receive Date: 20231128
  Receipt Date: 20231128
  Transmission Date: 20240109
  Serious: Yes (Other)
  Sender: FDA-Public Use
  Company Number: CA-JNJFOC-20231166514

PATIENT
  Age: 53 Year
  Sex: Female

DRUGS (2)
  1. REMICADE [Suspect]
     Active Substance: INFLIXIMAB
     Indication: Crohn^s disease
     Dosage: ON 21-NOV-2023, THE PATIENT RECEIVED 151ST INFLIXIMAB, RECOMBINANT, INFUSION AT DOSE OF 800 MG AND C
     Route: 042
  2. AMOXICILLIN\CLAVULANATE POTASSIUM [Suspect]
     Active Substance: AMOXICILLIN\CLAVULANATE POTASSIUM
     Indication: Pelvic abscess
     Dosage: 500/125 MG
     Route: 048
     Dates: start: 20231110, end: 20231117

REACTIONS (4)
  - Pelvic abscess [Recovered/Resolved]
  - Fungal infection [Recovered/Resolved]
  - Frequent bowel movements [Unknown]
  - Diarrhoea [Unknown]

NARRATIVE: CASE EVENT DATE: 20231101
